FAERS Safety Report 18585801 (Version 1)
Quarter: 2020Q4

REPORT INFORMATION
  Report Type: Spontaneous
  Country: US (occurrence: US)
  Receive Date: 20201206
  Receipt Date: 20201206
  Transmission Date: 20210114
  Serious: Yes (Other)
  Sender: FDA-Public Use
  Company Number: None

PATIENT
  Age: 73 Year
  Sex: Female
  Weight: 67.5 kg

DRUGS (18)
  1. LANTUS SOLOSTAR [Concomitant]
     Active Substance: INSULIN GLARGINE
  2. VASCEPA [Concomitant]
     Active Substance: ICOSAPENT ETHYL
  3. ALLOPURINOL. [Concomitant]
     Active Substance: ALLOPURINOL
  4. REPATHA [Concomitant]
     Active Substance: EVOLOCUMAB
  5. MITIGARE [Concomitant]
     Active Substance: COLCHICINE
  6. REPATHA [Suspect]
     Active Substance: EVOLOCUMAB
     Indication: BLOOD CHOLESTEROL INCREASED
     Dosage: ?          OTHER FREQUENCY:EVERY 2 WEEKS;OTHER ROUTE:INJECTION ABDOMEN?
     Dates: start: 20191116
  7. METHOTREXATE. [Concomitant]
     Active Substance: METHOTREXATE
  8. FAMOTIDINE. [Concomitant]
     Active Substance: FAMOTIDINE
  9. HYOSCYAMINE. [Concomitant]
     Active Substance: HYOSCYAMINE
  10. CARVEDILOL. [Concomitant]
     Active Substance: CARVEDILOL
  11. TRULICITY [Concomitant]
     Active Substance: DULAGLUTIDE
  12. INSULIN LISPRO [Concomitant]
     Active Substance: INSULIN LISPRO
  13. MULTIVITAMIN WITH MINERALS [Concomitant]
     Active Substance: MINERALS\VITAMINS
  14. MESTINON [Concomitant]
     Active Substance: PYRIDOSTIGMINE BROMIDE
  15. LISINOPRIL. [Concomitant]
     Active Substance: LISINOPRIL
  16. CLOPIDOGREL [Concomitant]
     Active Substance: CLOPIDOGREL BISULFATE
  17. FOLIC ACID. [Concomitant]
     Active Substance: FOLIC ACID
  18. CHLORTHALIDONE. [Concomitant]
     Active Substance: CHLORTHALIDONE

REACTIONS (1)
  - Myasthenia gravis [None]

NARRATIVE: CASE EVENT DATE: 20201104
